FAERS Safety Report 14358457 (Version 1)
Quarter: 2018Q1

REPORT INFORMATION
  Report Type: Spontaneous
  Country: US (occurrence: US)
  Receive Date: 20180105
  Receipt Date: 20180105
  Transmission Date: 20180509
  Serious: No
  Sender: FDA-Public Use
  Company Number: US-SA-2017SA225911

PATIENT
  Age: 63 Year
  Sex: Female
  Weight: 72.57 kg

DRUGS (2)
  1. DUPIXENT [Suspect]
     Active Substance: DUPILUMAB
     Indication: DERMATITIS ATOPIC
     Route: 058
     Dates: start: 201710
  2. CYCLOSPORIN [Concomitant]
     Active Substance: CYCLOSPORINE

REACTIONS (2)
  - Dermatitis atopic [Unknown]
  - Skin exfoliation [Unknown]

NARRATIVE: CASE EVENT DATE: 2017
